FAERS Safety Report 8152615-5 (Version None)
Quarter: 2012Q1

REPORT INFORMATION
  Report Type: 
  Country: None (occurrence: None)
  Receive Date: 20120221
  Receipt Date: 20120217
  Transmission Date: 20120608
  Serious: Yes (Life-Threatening, Hospitalization, Other)
  Sender: FDA-Public Use
  Company Number: US-BAYER-2011-047100

PATIENT
  Age: 22 Year
  Sex: Female

DRUGS (16)
  1. FLUCONAZOLE [Concomitant]
     Dosage: 125 MG, UNK
     Route: 048
     Dates: start: 20100406
  2. PROMETHAZINE [Concomitant]
     Dosage: 25 MG, UNK
     Route: 048
     Dates: start: 20100415
  3. RANITIDINE [Concomitant]
     Dosage: 150 MG, UNK
     Route: 048
  4. CHERATUSSIN AC [Concomitant]
     Dosage: UNK UNK, Q4HR
     Route: 048
     Dates: end: 20100419
  5. METRONIDAZOLE [Concomitant]
     Dosage: UNK
     Route: 061
  6. YASMIN [Suspect]
     Indication: PRODUCT USED FOR UNKNOWN INDICATION
  7. PRENATAL TABLETS [Concomitant]
     Dosage: UNK
     Route: 048
  8. MEBENDAZOLE [Concomitant]
     Dosage: UNK UNK, BID
     Route: 048
     Dates: start: 20100426
  9. PROPOXYPHENE HYDROCHLORIDE [Concomitant]
     Dosage: 100 MG, UNK
     Route: 048
     Dates: start: 20100224
  10. FEXOFENADINE [Concomitant]
     Dosage: 180 MG, UNK
     Route: 048
     Dates: start: 20100419
  11. YAZ [Suspect]
     Indication: PRODUCT USED FOR UNKNOWN INDICATION
  12. OMEPRAZOLE [Concomitant]
     Dosage: 20 MG, UNK
     Route: 048
     Dates: start: 20100419
  13. HYDROCODONE BITARTRATE AND ACETAMINOPHEN [Concomitant]
     Dosage: UNK UNK, PRN
     Route: 048
     Dates: start: 20100504
  14. DROSPIRENONE AND ETHINYL ESTRADIOL [Suspect]
     Indication: PRODUCT USED FOR UNKNOWN INDICATION
     Dosage: UNK
     Dates: end: 20100517
  15. R-TANNA [MEPYRAMINE TANNATE,PHENYLEPHRINE TANNATE] [Concomitant]
     Dosage: UNK
     Route: 048
     Dates: end: 20100419
  16. PRUET DHA [Concomitant]
     Dosage: UNK
     Route: 048
     Dates: end: 20100426

REACTIONS (10)
  - PAIN [None]
  - CHOLECYSTITIS CHRONIC [None]
  - INJURY [None]
  - PULMONARY EMBOLISM [None]
  - INTERNAL INJURY [None]
  - ORGAN FAILURE [None]
  - ANXIETY [None]
  - THROMBOSIS [None]
  - GALLBLADDER NON-FUNCTIONING [None]
  - ANHEDONIA [None]
